FAERS Safety Report 9832937 (Version 2)
Quarter: 2014Q1

REPORT INFORMATION
  Report Type: Spontaneous
  Country: US (occurrence: US)
  Receive Date: 20140121
  Receipt Date: 20140121
  Transmission Date: 20141002
  Serious: Yes (Hospitalization)
  Sender: FDA-Public Use
  Company Number: US-BAXTER-2014BAX001177

PATIENT
  Age: 54 Year
  Sex: Female

DRUGS (4)
  1. DIANEAL LOW CALCIUM [Suspect]
     Indication: PERITONEAL DIALYSIS
     Route: 033
     Dates: start: 20130930, end: 20140107
  2. DIANEAL LOW CALCIUM [Suspect]
     Route: 033
     Dates: start: 20130930, end: 20140107
  3. DIANEAL LOW CALCIUM [Suspect]
     Indication: PERITONEAL DIALYSIS
     Route: 033
     Dates: start: 20130930, end: 20140107
  4. DIANEAL LOW CALCIUM [Suspect]
     Route: 033
     Dates: start: 20130930, end: 20140107

REACTIONS (3)
  - Electrolyte depletion [Recovered/Resolved]
  - Azotaemia [Recovered/Resolved]
  - Coma [Recovering/Resolving]
